FAERS Safety Report 18755395 (Version 1)
Quarter: 2021Q1

REPORT INFORMATION
  Report Type: Spontaneous
  Country: GB (occurrence: GB)
  Receive Date: 20210119
  Receipt Date: 20210119
  Transmission Date: 20210419
  Serious: Yes (Other)
  Sender: FDA-Public Use
  Company Number: NVSC2021GB008959

PATIENT
  Age: 83 Year
  Sex: Female
  Weight: 44 kg

DRUGS (1)
  1. PENICILLIN G SOD. [Suspect]
     Active Substance: PENICILLIN G SODIUM
     Indication: PRODUCT USED FOR UNKNOWN INDICATION
     Dosage: 12MG/VIAL
     Route: 037
     Dates: start: 20210112

REACTIONS (1)
  - Rash [Unknown]

NARRATIVE: CASE EVENT DATE: 20210112
